FAERS Safety Report 7791820-4 (Version None)
Quarter: 2011Q4

REPORT INFORMATION
  Report Type: 
  Country: None (occurrence: None)
  Receive Date: 20111003
  Receipt Date: 20110927
  Transmission Date: 20120403
  Serious: No
  Sender: FDA-Public Use
  Company Number: US-PFIZER INC-2011230740

PATIENT
  Sex: Female
  Weight: 65.76 kg

DRUGS (4)
  1. FENTANYL [Concomitant]
     Indication: PAIN
     Dosage: 100 UG, (BEING CHANGED EVERY 72 HOURS) AS NEEDED
     Route: 062
     Dates: start: 20090101
  2. PRISTIQ [Suspect]
     Indication: DEPRESSION
     Dosage: 50MG DAILY
     Route: 048
     Dates: start: 20110912
  3. ZOLOFT [Suspect]
     Indication: DEPRESSION
     Dosage: 200MG DAILY
     Route: 048
     Dates: end: 20110801
  4. WELLBUTRIN [Suspect]
     Indication: DEPRESSION
     Dosage: UNK
     Route: 048
     Dates: end: 20110801

REACTIONS (3)
  - HYPERHIDROSIS [None]
  - COLD SWEAT [None]
  - DRUG INEFFECTIVE [None]
